FAERS Safety Report 22239795 (Version 1)
Quarter: 2023Q2

REPORT INFORMATION
  Report Type: Spontaneous
  Country: US (occurrence: US)
  Receive Date: 20230421
  Receipt Date: 20230421
  Transmission Date: 20230722
  Serious: No
  Sender: FDA-Public Use
  Company Number: US-SANOFI-01578222

PATIENT
  Age: 12 Month
  Sex: Female

DRUGS (1)
  1. DUPIXENT [Suspect]
     Active Substance: DUPILUMAB
     Dosage: 600 MG, 1X
     Route: 065
     Dates: start: 20230407, end: 20230407

REACTIONS (2)
  - Malaise [Unknown]
  - Exposure via breast milk [Unknown]
